FAERS Safety Report 6586823-1 (Version None)
Quarter: 2010Q1

REPORT INFORMATION
  Report Type: 
  Country: None (occurrence: None)
  Receive Date: 20100217
  Receipt Date: 20090909
  Transmission Date: 20100710
  Serious: No
  Sender: FDA-Public Use
  Company Number: US-ALLERGAN-0910324US

PATIENT
  Age: 52 Year
  Sex: Female
  Weight: 65.76 kg

DRUGS (4)
  1. BOTOX COSMETIC [Suspect]
     Indication: SKIN WRINKLING
     Dosage: 20 UNITS, SINGLE
     Dates: start: 20090721, end: 20090721
  2. BOTOX COSMETIC [Suspect]
     Dosage: UNK
     Dates: start: 20090312, end: 20090312
  3. BOTOX COSMETIC [Suspect]
     Dosage: UNK
     Dates: start: 20081022, end: 20081022
  4. BOTOX COSMETIC [Suspect]
     Dosage: UNK
     Dates: start: 20080304, end: 20080304

REACTIONS (4)
  - BURNING SENSATION [None]
  - HEADACHE [None]
  - NASAL DISCOMFORT [None]
  - SENSATION OF HEAVINESS [None]
